FAERS Safety Report 24551641 (Version 2)
Quarter: 2024Q4

REPORT INFORMATION
  Report Type: Report from Study
  Country: JP (occurrence: JP)
  Receive Date: 20241026
  Receipt Date: 20241210
  Transmission Date: 20250115
  Serious: Yes (Hospitalization, Other)
  Sender: ALEXION PHARMACEUTICALS
  Company Number: JP-ASTRAZENECA-240104745_032420_P_1

PATIENT
  Age: 55 Year
  Weight: 73 kg

DRUGS (9)
  1. TEZEPELUMAB [Suspect]
     Active Substance: TEZEPELUMAB
     Indication: Asthma
     Dosage: UNK
  2. TEZEPELUMAB [Suspect]
     Active Substance: TEZEPELUMAB
     Dosage: UNK
     Route: 041
  3. TEZEPELUMAB [Suspect]
     Active Substance: TEZEPELUMAB
     Dosage: UNK
  4. TEZEPELUMAB [Suspect]
     Active Substance: TEZEPELUMAB
     Dosage: UNK
     Route: 041
  5. UNSPECIFIED INGREDIENT [Concomitant]
     Active Substance: UNSPECIFIED INGREDIENT
     Dosage: DOSE UNKNOWN
     Route: 065
  6. UNSPECIFIED INGREDIENT [Concomitant]
     Active Substance: UNSPECIFIED INGREDIENT
     Dosage: DOSE UNKNOWN
     Route: 065
  7. other antiallergic agents list [Concomitant]
     Dosage: DOSE UNKNOWN
     Route: 065
  8. other antiallergic agents list [Concomitant]
     Dosage: DOSE UNKNOWN
     Route: 065
  9. OMALIZUMAB(GENETICAL RECOMBINATION) [Concomitant]

REACTIONS (4)
  - Urticaria [Recovering/Resolving]
  - Tooth abscess [Recovering/Resolving]
  - Acute abdomen [Recovering/Resolving]
  - Back pain [Recovering/Resolving]
